FAERS Safety Report 4954945-4 (Version None)
Quarter: 2006Q1

REPORT INFORMATION
  Report Type: 
  Country: None (occurrence: None)
  Receive Date: 20060322
  Receipt Date: 20060308
  Transmission Date: 20060701
  Serious: Yes (Other)
  Sender: FDA-Public Use
  Company Number: 2006034531

PATIENT
  Age: 50 Year
  Sex: Female
  Weight: 75.2971 kg

DRUGS (7)
  1. CELEBREX [Suspect]
     Indication: ARTHRITIS
     Dosage: 200 MG (200 MG, 1 IN 1 D), ORAL
     Route: 048
     Dates: start: 20020101
  2. COZAAR [Concomitant]
  3. PROZAC [Concomitant]
  4. ATENOLOL [Concomitant]
  5. PREMPRO [Concomitant]
  6. DARVOCET [Concomitant]
  7. K-DUR 10 [Concomitant]

REACTIONS (2)
  - BLOOD CHOLESTEROL INCREASED [None]
  - MENISCUS LESION [None]
